FAERS Safety Report 5897475-8 (Version None)
Quarter: 2008Q3

REPORT INFORMATION
  Report Type: 
  Country: None (occurrence: None)
  Receive Date: 20080925
  Receipt Date: 20080916
  Transmission Date: 20090109
  Serious: Yes (Hospitalization)
  Sender: FDA-Public Use
  Company Number: FR-BRISTOL-MYERS SQUIBB COMPANY-14346274

PATIENT
  Age: 58 Year
  Sex: Female

DRUGS (5)
  1. ENDOXAN [Suspect]
     Indication: MULTIPLE SCLEROSIS
     Route: 042
     Dates: start: 20080728, end: 20080728
  2. LYRICA [Concomitant]
     Dosage: 1 DF: 150MGX2TABS
     Route: 048
  3. LIORESAL [Concomitant]
     Dosage: 1 DF:10MGX3TABS
     Route: 048
  4. IXPRIM [Concomitant]
  5. UROMITEXAN [Concomitant]

REACTIONS (3)
  - APHASIA [None]
  - CONFUSIONAL STATE [None]
  - HYPONATRAEMIA [None]
